FAERS Safety Report 5592453-0 (Version None)
Quarter: 2008Q1

REPORT INFORMATION
  Report Type: 
  Country: None (occurrence: None)
  Receive Date: 20080115
  Receipt Date: 20080103
  Transmission Date: 20080703
  Serious: Yes (Hospitalization, Other)
  Sender: FDA-Public Use
  Company Number: PL-MERCK-0712USA08007

PATIENT
  Age: 13 Year
  Sex: Male

DRUGS (5)
  1. HYDROCORTONE [Suspect]
     Indication: CROHN'S DISEASE
     Route: 042
  2. CYCLOSPORINE [Suspect]
     Route: 042
  3. CYCLOSPORINE [Suspect]
     Route: 048
  4. METHOTREXATE [Suspect]
     Indication: CROHN'S DISEASE
     Route: 030
  5. METHOTREXATE [Suspect]
     Route: 030

REACTIONS (9)
  - ANAEMIA [None]
  - APNOEA [None]
  - BODY MASS INDEX DECREASED [None]
  - COLITIS ULCERATIVE [None]
  - CONVULSION [None]
  - CROHN'S DISEASE [None]
  - LEUKOPENIA [None]
  - OSTEOPOROSIS [None]
  - STOMATITIS [None]
